FAERS Safety Report 9877668 (Version 6)
Quarter: 2014Q2

REPORT INFORMATION
  Report Type: Spontaneous
  Country: US (occurrence: None)
  Receive Date: 20140204
  Receipt Date: 20140625
  Transmission Date: 20141212
  Serious: Yes (Other)
  Sender: FDA-Public Use
  Company Number: AEGR000214

PATIENT
  Age: 59 Year
  Sex: Female
  Weight: 103.9 kg

DRUGS (13)
  1. JUXTAPID [Suspect]
     Indication: TYPE IIA HYPERLIPIDAEMIA
     Route: 048
     Dates: start: 20131014, end: 20131104
  2. ZETIA [Suspect]
     Indication: PRODUCT USED FOR UNKNOWN INDICATION
     Route: 048
  3. LASIX [Concomitant]
  4. COREG [Concomitant]
  5. POTASSIUM [Concomitant]
  6. BENICAR [Concomitant]
  7. PLAVIX [Concomitant]
  8. COREG CR [Concomitant]
  9. NITROSTAT [Concomitant]
  10. ISOSORBIDE [Concomitant]
  11. ATORVASTATIN [Concomitant]
  12. ASPIRIN [Concomitant]
  13. ANTIVERT [Concomitant]

REACTIONS (2)
  - Alanine aminotransferase increased [None]
  - Aspartate aminotransferase increased [None]
